FAERS Safety Report 5281164-7 (Version None)
Quarter: 2007Q1

REPORT INFORMATION
  Report Type: 
  Country: None (occurrence: None)
  Receive Date: 20070329
  Receipt Date: 20070320
  Transmission Date: 20070707
  Serious: Yes (Other)
  Sender: FDA-Public Use
  Company Number: JP-MERCK-0703USA04817

PATIENT
  Age: 27 Year
  Sex: Male

DRUGS (3)
  1. FOSAMAX [Suspect]
     Indication: OSTEOPOROSIS PROPHYLAXIS
     Route: 048
  2. HORMONES (UNSPECIFIED) [Suspect]
     Indication: NERVE BLOCK
     Route: 051
  3. HORMONES (UNSPECIFIED) [Suspect]
     Route: 051

REACTIONS (1)
  - OSTEONECROSIS [None]
